FAERS Safety Report 8339964-2 (Version None)
Quarter: 2012Q2

REPORT INFORMATION
  Report Type: 
  Country: None (occurrence: None)
  Receive Date: 20120507
  Receipt Date: 20120503
  Transmission Date: 20120825
  Serious: Yes (Hospitalization)
  Sender: FDA-Public Use
  Company Number: FR-PFIZER INC-2012108360

PATIENT
  Age: 58 Year
  Sex: Female

DRUGS (5)
  1. ACETAMINOPHEN [Suspect]
     Indication: SPINAL OSTEOARTHRITIS
     Dosage: UNK
     Route: 048
     Dates: start: 20120402, end: 20120415
  2. MIOREL [Concomitant]
     Indication: OSTEOARTHRITIS
     Dosage: UNK
     Dates: end: 20120405
  3. PIASCLEDINE [Concomitant]
  4. CELEBREX [Suspect]
     Indication: OSTEOARTHRITIS
     Dosage: UNK
     Route: 048
     Dates: start: 20120402, end: 20120415
  5. FLECTOR [Suspect]
     Indication: SPINAL OSTEOARTHRITIS
     Dosage: UNK
     Route: 003
     Dates: start: 20120402, end: 20120415

REACTIONS (2)
  - LIVER INJURY [None]
  - RASH PAPULAR [None]
